FAERS Safety Report 21751333 (Version 1)
Quarter: 2022Q4

REPORT INFORMATION
  Report Type: Report from Study
  Country: US (occurrence: US)
  Receive Date: 20221220
  Receipt Date: 20221220
  Transmission Date: 20230113
  Serious: No
  Sender: FDA-Public Use
  Company Number: US-ABBVIE-4235684

PATIENT
  Sex: Female

DRUGS (6)
  1. RINVOQ [Suspect]
     Active Substance: UPADACITINIB
     Indication: Rheumatoid arthritis
     Route: 048
     Dates: start: 20220127
  2. MOXICILLIN [Concomitant]
     Indication: Product used for unknown indication
  3. FLONASE [Concomitant]
     Active Substance: FLUTICASONE PROPIONATE
  4. MUCINEX [Concomitant]
     Active Substance: GUAIFENESIN
  5. BENZONATATE [Concomitant]
     Active Substance: BENZONATATE
     Indication: Product used for unknown indication
  6. XYZAL [Concomitant]
     Active Substance: LEVOCETIRIZINE DIHYDROCHLORIDE

REACTIONS (7)
  - Upper respiratory tract infection [Not Recovered/Not Resolved]
  - Sputum discoloured [Unknown]
  - Drug ineffective [Unknown]
  - Ear discomfort [Unknown]
  - Cerebral congestion [Unknown]
  - Arthralgia [Unknown]
  - Pain [Not Recovered/Not Resolved]

NARRATIVE: CASE EVENT DATE: 20220101
